FAERS Safety Report 17251390 (Version 1)
Quarter: 2020Q1

REPORT INFORMATION
  Report Type: Spontaneous
  Country: US (occurrence: US)
  Receive Date: 20200108
  Receipt Date: 20200108
  Transmission Date: 20200409
  Serious: Yes (Other)
  Sender: FDA-Public Use
  Company Number: None

PATIENT
  Sex: Male

DRUGS (1)
  1. SODIUM POLYSTYRENE SULFONATE ORAL POWDER [Suspect]
     Active Substance: SODIUM POLYSTYRENE SULFONATE

REACTIONS (2)
  - Diarrhoea [None]
  - Abdominal distension [None]
